FAERS Safety Report 5818871-0 (Version None)
Quarter: 2008Q3

REPORT INFORMATION
  Report Type: 
  Country: None (occurrence: None)
  Receive Date: 20080723
  Receipt Date: 20080714
  Transmission Date: 20090109
  Serious: Yes (Hospitalization)
  Sender: FDA-Public Use
  Company Number: JP-AMGEN-US295626

PATIENT
  Age: 55 Year
  Sex: Female

DRUGS (3)
  1. ENBREL [Suspect]
     Indication: RHEUMATOID ARTHRITIS
     Route: 058
     Dates: end: 20080702
  2. PROGRAF [Concomitant]
     Route: 065
  3. METHOTREXATE SODIUM [Concomitant]
     Route: 065

REACTIONS (1)
  - SPONDYLITIS [None]
